FAERS Safety Report 7290762-0 (Version None)
Quarter: 2011Q1

REPORT INFORMATION
  Report Type: 
  Country: None (occurrence: None)
  Receive Date: 20110214
  Receipt Date: 20110204
  Transmission Date: 20110831
  Serious: Yes (Hospitalization, Other)
  Sender: FDA-Public Use
  Company Number: JP-ROCHE-752105

PATIENT
  Sex: Female
  Weight: 52 kg

DRUGS (7)
  1. FERROUS CITRATE [Concomitant]
     Route: 048
     Dates: start: 20090203, end: 20110121
  2. RHEUMATREX [Concomitant]
     Dosage: 8MG OF 4MG/WEEK-/WEEK
     Route: 048
     Dates: start: 20070904, end: 20100305
  3. URSO 250 [Concomitant]
     Route: 048
     Dates: start: 20100305, end: 20110121
  4. PREDNISOLONE [Concomitant]
     Route: 048
     Dates: start: 20100409, end: 20110121
  5. VOLTAREN [Concomitant]
     Dosage: SUPPOSITORIAE RECTALE
     Route: 054
     Dates: start: 20070417, end: 20110121
  6. OMEPRAL [Concomitant]
     Route: 048
     Dates: start: 20100409, end: 20110121
  7. ACTEMRA [Suspect]
     Indication: RHEUMATOID ARTHRITIS
     Route: 041
     Dates: start: 20100121, end: 20101209

REACTIONS (3)
  - HIP ARTHROPLASTY [None]
  - SUBARACHNOID HAEMORRHAGE [None]
  - HYPERLIPIDAEMIA [None]
